FAERS Safety Report 12905055 (Version 8)
Quarter: 2018Q1

REPORT INFORMATION
  Report Type: Report from Study
  Country: US (occurrence: US)
  Receive Date: 20161102
  Receipt Date: 20180126
  Transmission Date: 20180508
  Serious: Yes (Hospitalization, Other)
  Sender: FDA-Public Use
  Company Number: US-SAOL THERAPEUTICS-2016SAO00972

PATIENT
  Age: 26 Year
  Sex: Male

DRUGS (30)
  1. BUPIVACAINE. [Suspect]
     Active Substance: BUPIVACAINE
     Dosage: 20.74 MG, \DAY
     Route: 037
     Dates: start: 20160728, end: 20160817
  2. BUPIVACAINE. [Suspect]
     Active Substance: BUPIVACAINE
     Dosage: 14.999 MG, \DAY
     Route: 037
     Dates: start: 20170209, end: 20170323
  3. BUPIVACAINE. [Suspect]
     Active Substance: BUPIVACAINE
     Dosage: 17.025 MG, \DAY
     Route: 037
     Dates: start: 20170504
  4. CLONIDINE. [Suspect]
     Active Substance: CLONIDINE
     Dosage: 99.94 ?G, \DAY
     Route: 037
     Dates: start: 20160609, end: 20160728
  5. COMPOUNDED BACLOFEN [Suspect]
     Active Substance: BACLOFEN
     Dosage: 50.00 ?G, \DAY
     Route: 037
     Dates: start: 20170209, end: 20170323
  6. BUPIVACAINE. [Suspect]
     Active Substance: BUPIVACAINE
     Dosage: 19.714 MG, \DAY, MAX DOSE
     Route: 037
     Dates: start: 20170914
  7. CLONIDINE. [Suspect]
     Active Substance: CLONIDINE
     Dosage: 197.36 ?G, \DAY, MAX DOSE
     Route: 037
     Dates: start: 20170209, end: 20170323
  8. COMPOUNDED BACLOFEN [Suspect]
     Active Substance: BACLOFEN
     Dosage: 55.01 ?G, \DAY
     Route: 037
     Dates: start: 20170323, end: 20170504
  9. BUPIVACAINE. [Suspect]
     Active Substance: BUPIVACAINE
     Dosage: 11.993 MG, \DAY
     Route: 037
     Dates: start: 20160609, end: 20160728
  10. COMPOUNDED BACLOFEN [Suspect]
     Active Substance: BACLOFEN
     Dosage: 69.13 ?G, \DAY
     Route: 037
     Dates: start: 20160728, end: 20160817
  11. COMPOUNDED BACLOFEN [Suspect]
     Active Substance: BACLOFEN
     Dosage: 65.71 ?G, \DAY, MAX DOSE
     Route: 037
     Dates: start: 20170914
  12. CLONIDINE. [Suspect]
     Active Substance: CLONIDINE
     Dosage: 172.84 ?G, \DAY
     Route: 037
     Dates: start: 20160728, end: 20160817
  13. CLONIDINE. [Suspect]
     Active Substance: CLONIDINE
     Dosage: 124.99 ?G, \DAY
     Route: 037
     Dates: start: 20170209, end: 20170323
  14. CLONIDINE. [Suspect]
     Active Substance: CLONIDINE
     Dosage: 141.87 ?G, \DAY
     Route: 037
     Dates: start: 20170504
  15. CLONIDINE. [Suspect]
     Active Substance: CLONIDINE
     Dosage: 164.28 ?G, \DAY, MAX DOSE
     Route: 037
     Dates: start: 20170914
  16. COMPOUNDED BACLOFEN [Suspect]
     Active Substance: BACLOFEN
     Dosage: 56.75 ?G, \DAY
     Route: 037
     Dates: start: 20170504
  17. COMPOUNDED BACLOFEN [Suspect]
     Active Substance: BACLOFEN
     Dosage: 88.56 ?G, \DAY, MAX DOSE
     Route: 037
     Dates: start: 20170504
  18. BUPIVACAINE. [Suspect]
     Active Substance: BUPIVACAINE
     Dosage: 29.569 MG, \DAY, MAX DOSE
     Route: 037
     Dates: start: 20170504
  19. CLONIDINE. [Suspect]
     Active Substance: CLONIDINE
     Dosage: 217.15 ?G, \DAY, MAX DOSE
     Route: 037
     Dates: start: 20170323, end: 20170504
  20. CLONIDINE. [Suspect]
     Active Substance: CLONIDINE
     Dosage: 125.31 ?G, \DAY
     Route: 037
     Dates: start: 20170914
  21. COMPOUNDED BACLOFEN [Suspect]
     Active Substance: BACLOFEN
     Dosage: 39.98 ?G, \DAY
     Route: 037
     Dates: start: 20160609, end: 20160728
  22. COMPOUNDED BACLOFEN [Suspect]
     Active Substance: BACLOFEN
     Dosage: 88.86 ?G, \DAY, MAX DOSE
     Route: 037
     Dates: start: 20170323, end: 20170504
  23. COMPOUNDED BACLOFEN [Suspect]
     Active Substance: BACLOFEN
     Dosage: 50.12 ?G, \DAY
     Route: 037
     Dates: start: 20170914
  24. BUPIVACAINE. [Suspect]
     Active Substance: BUPIVACAINE
     Dosage: 16.503 MG, \DAY
     Route: 037
     Dates: start: 20170323, end: 20170504
  25. COMPOUNDED BACLOFEN [Suspect]
     Active Substance: BACLOFEN
     Dosage: 78.95 ?G, \DAY, MAX DOSE
     Route: 037
     Dates: start: 20170209, end: 20170323
  26. BUPIVACAINE. [Suspect]
     Active Substance: BUPIVACAINE
     Dosage: 23.684 MG, \DAY, MAX DOSE
     Route: 037
     Dates: start: 20170209, end: 20170323
  27. BUPIVACAINE. [Suspect]
     Active Substance: BUPIVACAINE
     Dosage: 26.058 MG, \DAY, MAX DOSE
     Route: 037
     Dates: start: 20170323, end: 20170504
  28. BUPIVACAINE. [Suspect]
     Active Substance: BUPIVACAINE
     Dosage: 15.037 MG, \DAY
     Route: 037
     Dates: start: 20170914
  29. CLONIDINE. [Suspect]
     Active Substance: CLONIDINE
     Dosage: 137.52 ?G, \DAY
     Route: 037
     Dates: start: 20170323, end: 20170504
  30. CLONIDINE. [Suspect]
     Active Substance: CLONIDINE
     Dosage: 221.41 ?G, \DAY, MAX DOSE
     Route: 037
     Dates: start: 20170504

REACTIONS (7)
  - Implant site inflammation [Not Recovered/Not Resolved]
  - Post lumbar puncture syndrome [Recovered/Resolved]
  - Implant site swelling [Not Recovered/Not Resolved]
  - Catheter site pain [Recovered/Resolved]
  - Implant site fibrosis [Unknown]
  - Complication associated with device [Unknown]
  - Cerebrospinal fluid leakage [Not Recovered/Not Resolved]

NARRATIVE: CASE EVENT DATE: 20160803
